FAERS Safety Report 5964318-3 (Version None)
Quarter: 2008Q4

REPORT INFORMATION
  Report Type: 
  Country: None (occurrence: None)
  Receive Date: 20081124
  Receipt Date: 20081119
  Transmission Date: 20090506
  Serious: Yes (Hospitalization, Other)
  Sender: FDA-Public Use
  Company Number: BR-PFIZER INC-2006046460

PATIENT
  Sex: Male

DRUGS (8)
  1. FRONTAL [Suspect]
     Indication: INSOMNIA
     Route: 048
     Dates: start: 20010101
  2. FRONTAL XR [Suspect]
  3. KEFLEX [Suspect]
     Dates: start: 20060301
  4. ALL OTHER THERAPEUTIC PRODUCTS [Concomitant]
  5. ENALAPRIL MALEATE [Concomitant]
  6. KEFLEX [Concomitant]
     Dates: start: 20060101, end: 20060101
  7. ACETYLSALICYLIC ACID SRT [Concomitant]
     Dates: start: 20060101
  8. AMIODARONE HCL [Concomitant]
     Dates: start: 20060101

REACTIONS (12)
  - ARRHYTHMIA [None]
  - BLOOD PRESSURE DECREASED [None]
  - CARDIAC DISORDER [None]
  - CARDIAC FAILURE [None]
  - DEPRESSION [None]
  - DIZZINESS [None]
  - DRUG INEFFECTIVE [None]
  - GAIT DISTURBANCE [None]
  - HYPERTENSION [None]
  - INSOMNIA [None]
  - MEMORY IMPAIRMENT [None]
  - SYNCOPE [None]
